FAERS Safety Report 4767692-9 (Version None)
Quarter: 2005Q3

REPORT INFORMATION
  Report Type: 
  Country: None (occurrence: None)
  Receive Date: 20050913
  Receipt Date: 20050829
  Transmission Date: 20060218
  Serious: Yes (Death, Hospitalization)
  Sender: FDA-Public Use
  Company Number: US-BRISTOL-MYERS SQUIBB COMPANY-13094461

PATIENT
  Age: 81 Year
  Sex: Female

DRUGS (3)
  1. ERBITUX [Suspect]
  2. GEMCITABINE [Suspect]
  3. RADIATION THERAPY [Suspect]

REACTIONS (3)
  - CEREBROVASCULAR ACCIDENT [None]
  - DEATH [None]
  - FEBRILE NEUTROPENIA [None]
